FAERS Safety Report 11135679 (Version 1)
Quarter: 2015Q2

REPORT INFORMATION
  Report Type: Spontaneous
  Country: US (occurrence: None)
  Receive Date: 20150522
  Receipt Date: 20150522
  Transmission Date: 20150821
  Serious: Yes (Other)
  Sender: FDA-Public Use
  Company Number: None

PATIENT
  Age: 60 Year
  Sex: Female
  Weight: 75 kg

DRUGS (2)
  1. WARFARIN 5 MG TARO [Suspect]
     Active Substance: WARFARIN
     Indication: ATRIAL FIBRILLATION
     Dosage: 5 MG X 1.5 ON MON. FR
     Route: 048
  2. WARFARIN 5 MG TARO [Suspect]
     Active Substance: WARFARIN
     Dosage: 5 MG X 1.5 ON MON, FR
     Route: 048

REACTIONS (2)
  - International normalised ratio decreased [None]
  - Product quality issue [None]

NARRATIVE: CASE EVENT DATE: 20150518
